FAERS Safety Report 5978286-1 (Version None)
Quarter: 2008Q4

REPORT INFORMATION
  Report Type: 
  Country: None (occurrence: None)
  Receive Date: 20081204
  Receipt Date: 20081204
  Transmission Date: 20090506
  Serious: Yes (Other)
  Sender: FDA-Public Use
  Company Number: US-ABBOTT-08P-163-0487957-00

PATIENT
  Sex: Female
  Weight: 61.29 kg

DRUGS (3)
  1. HUMIRA [Suspect]
     Indication: PSORIASIS
  2. HUMIRA [Suspect]
  3. BIRTH CONTROL [Concomitant]
     Indication: CONTRACEPTION

REACTIONS (3)
  - ARTERIAL HAEMORRHAGE [None]
  - ARTERIAL INJURY [None]
  - BLOOD PRESSURE DECREASED [None]
